FAERS Safety Report 11314752 (Version 2)
Quarter: 2015Q3

REPORT INFORMATION
  Report Type: Spontaneous
  Country: US (occurrence: US)
  Receive Date: 20150727
  Receipt Date: 20150731
  Transmission Date: 20151125
  Serious: No
  Sender: FDA-Public Use
  Company Number: US-PFIZER INC-2015248380

PATIENT
  Age: 14 Year
  Sex: Female
  Weight: 54.42 kg

DRUGS (2)
  1. DETROL LA [Suspect]
     Active Substance: TOLTERODINE TARTRATE
     Indication: SPINA BIFIDA
  2. DETROL LA [Suspect]
     Active Substance: TOLTERODINE TARTRATE
     Indication: NEUROGENIC BLADDER
     Dosage: 2 MG, 2X/DAY

REACTIONS (3)
  - Drug effect decreased [Unknown]
  - Intentional product misuse [Unknown]
  - Product use issue [Unknown]
